FAERS Safety Report 18777181 (Version 1)
Quarter: 2021Q1

REPORT INFORMATION
  Report Type: Report from Study
  Country: None (occurrence: US)
  Receive Date: 20210123
  Receipt Date: 20210123
  Transmission Date: 20210419
  Serious: Yes (Other)
  Sender: FDA-Public Use
  Company Number: US-ABBVIE-20K-163-3678346-00

PATIENT
  Sex: Male

DRUGS (3)
  1. HUMIRA [Suspect]
     Active Substance: ADALIMUMAB
     Dosage: CITRATE FREE
     Route: 058
  2. METHOTREXATE. [Suspect]
     Active Substance: METHOTREXATE
     Indication: PRODUCT USED FOR UNKNOWN INDICATION
     Route: 065
  3. HUMIRA [Suspect]
     Active Substance: ADALIMUMAB
     Indication: PSORIATIC ARTHROPATHY
     Dosage: CITRATE FREE
     Route: 058

REACTIONS (11)
  - Ear operation [Unknown]
  - Osteoarthritis [Unknown]
  - Post procedural complication [Unknown]
  - Migraine [Unknown]
  - Arthropathy [Unknown]
  - Hernia [Unknown]
  - Cerebrospinal fluid leakage [Unknown]
  - Fatigue [Unknown]
  - Feeling abnormal [Unknown]
  - Trigger finger [Unknown]
  - Arthralgia [Unknown]
